FAERS Safety Report 21442886 (Version 3)
Quarter: 2024Q2

REPORT INFORMATION
  Report Type: Report from Study
  Country: CZ (occurrence: CZ)
  Receive Date: 20221012
  Receipt Date: 20240607
  Transmission Date: 20240715
  Serious: Yes (Hospitalization)
  Sender: FDA-Public Use
  Company Number: CZ-ABBVIE-4149947

PATIENT
  Age: 58 Year
  Sex: Female

DRUGS (1)
  1. HUMIRA [Suspect]
     Active Substance: ADALIMUMAB
     Indication: Rheumatoid arthritis
     Route: 058
     Dates: start: 20161222, end: 20220407

REACTIONS (2)
  - Ovarian cyst [Recovered/Resolved]
  - Salpingo-oophorectomy bilateral [Recovered/Resolved]

NARRATIVE: CASE EVENT DATE: 20220103
